FAERS Safety Report 13738081 (Version 1)
Quarter: 2017Q3

REPORT INFORMATION
  Report Type: Spontaneous
  Country: CN (occurrence: CN)
  Receive Date: 20170710
  Receipt Date: 20170710
  Transmission Date: 20171127
  Serious: Yes (Hospitalization, Other)
  Sender: FDA-Public Use
  Company Number: CN-PFIZER INC-2017294960

PATIENT
  Age: 16 Month
  Sex: Male

DRUGS (1)
  1. METHOTREXATE. [Suspect]
     Active Substance: METHOTREXATE
     Indication: ACUTE LYMPHOCYTIC LEUKAEMIA (IN REMISSION)
     Dosage: 1.8 G, 1X/DAY
     Route: 041
     Dates: start: 20170427, end: 20170427

REACTIONS (2)
  - Mouth ulceration [Recovering/Resolving]
  - Chemotherapeutic drug level increased [Recovering/Resolving]

NARRATIVE: CASE EVENT DATE: 20170428
